FAERS Safety Report 8155417-9 (Version None)
Quarter: 2012Q1

REPORT INFORMATION
  Report Type: 
  Country: None (occurrence: None)
  Receive Date: 20120215
  Receipt Date: 20111207
  Transmission Date: 20120608
  Serious: Yes (Hospitalization)
  Sender: FDA-Public Use
  Company Number: SE-024733

PATIENT
  Age: 69 Year
  Sex: Female

DRUGS (3)
  1. OFATUMUMAB [Suspect]
     Indication: CHRONIC LYMPHOCYTIC LEUKAEMIA
     Dosage: INTRAVENOUS
     Dates: start: 20110406, end: 20110831
  2. (CHLORAMBUCIL) [Suspect]
     Indication: CHRONIC LYMPHOCYTIC LEUKAEMIA
     Dosage: 10 MG/M2 ORAL
     Route: 048
     Dates: start: 20110406
  3. FILGRASTIMDOSE [Concomitant]

REACTIONS (3)
  - FEBRILE NEUTROPENIA [None]
  - CULTURE POSITIVE [None]
  - HAEMOPHILUS TEST POSITIVE [None]
